FAERS Safety Report 23473575 (Version 1)
Quarter: 2024Q1

REPORT INFORMATION
  Report Type: Spontaneous
  Country: US (occurrence: US)
  Receive Date: 20240203
  Receipt Date: 20240203
  Transmission Date: 20240410
  Serious: No
  Sender: FDA-Public Use
  Company Number: US-HORIZON THERAPEUTICS-HZN-2022-009472

PATIENT

DRUGS (5)
  1. TEPEZZA [Suspect]
     Active Substance: TEPROTUMUMAB-TRBW
     Indication: Endocrine ophthalmopathy
     Dosage: FIRST INFUSION 20 MG/KG, EVERY 3 WEEKS
     Route: 042
     Dates: start: 20221019
  2. TEPEZZA [Suspect]
     Active Substance: TEPROTUMUMAB-TRBW
     Indication: Thyroid disorder
     Dosage: 2ND INFUSION UNK
     Route: 042
     Dates: start: 2022
  3. TEPEZZA [Suspect]
     Active Substance: TEPROTUMUMAB-TRBW
     Indication: Eye disorder
     Dosage: 3RD INFUSION
     Route: 042
     Dates: start: 2022
  4. TEPEZZA [Suspect]
     Active Substance: TEPROTUMUMAB-TRBW
     Indication: Adnexa uteri mass
     Dosage: 6TH INFUSION
     Route: 042
     Dates: start: 20230201
  5. TEPEZZA [Suspect]
     Active Substance: TEPROTUMUMAB-TRBW
     Dosage: SEVENTH INFUSION
     Route: 042
     Dates: start: 20230222

REACTIONS (12)
  - Headache [Recovered/Resolved]
  - Muscle spasms [Recovered/Resolved]
  - Impaired work ability [Unknown]
  - Contusion [Unknown]
  - Pain [Unknown]
  - Metamorphopsia [Unknown]
  - Visual impairment [Unknown]
  - Diplopia [Unknown]
  - Eye pruritus [Recovered/Resolved]
  - Lip swelling [Recovered/Resolved]
  - Pyrexia [Recovered/Resolved]
  - SARS-CoV-2 test positive [Unknown]

NARRATIVE: CASE EVENT DATE: 20220101
